FAERS Safety Report 4907527-4 (Version None)
Quarter: 2006Q1

REPORT INFORMATION
  Report Type: 
  Country: None (occurrence: None)
  Receive Date: 20060208
  Receipt Date: 20060131
  Transmission Date: 20060701
  Serious: Yes (Disabling)
  Sender: FDA-Public Use
  Company Number: TGP2006A00084

PATIENT
  Age: 56 Year
  Sex: Male

DRUGS (4)
  1. ACTOS [Suspect]
     Indication: DIABETES MELLITUS
     Dosage: 60 MG
     Route: 048
     Dates: start: 20040701
  2. NOVONORM (REPAGLINIDE) [Concomitant]
  3. THIOCTACID (THIOCTIC ACID) [Concomitant]
  4. GLUCOBAY [Concomitant]

REACTIONS (3)
  - MACULAR OEDEMA [None]
  - OVERDOSE [None]
  - VISION BLURRED [None]
